FAERS Safety Report 23744301 (Version 1)
Quarter: 2024Q2

REPORT INFORMATION
  Report Type: Spontaneous
  Country: CN (occurrence: CN)
  Receive Date: 20240415
  Receipt Date: 20240415
  Transmission Date: 20240715
  Serious: Yes (Other)
  Sender: FDA-Public Use
  Company Number: CN-PFIZER INC-PV202400048114

PATIENT
  Age: 52 Year
  Sex: Female
  Weight: 60 kg

DRUGS (4)
  1. LINEZOLID [Suspect]
     Active Substance: LINEZOLID
     Indication: Bacteraemia
     Dosage: 600 MG, 2X/DAY
     Route: 048
     Dates: start: 20240401, end: 20240403
  2. LINEZOLID [Suspect]
     Active Substance: LINEZOLID
     Indication: Bacteraemia
     Dosage: 1 DF, 2X/DAY
     Route: 041
     Dates: start: 20240307, end: 20240313
  3. LINEZOLID [Suspect]
     Active Substance: LINEZOLID
     Dosage: 1 DF, 2X/DAY
     Route: 041
     Dates: start: 20240316, end: 20240326
  4. LINEZOLID [Suspect]
     Active Substance: LINEZOLID
     Dosage: 1 DF, 2X/DAY
     Route: 041
     Dates: start: 20240328, end: 20240401

REACTIONS (2)
  - Platelet count decreased [Unknown]
  - Hyperpyrexia [Unknown]

NARRATIVE: CASE EVENT DATE: 20240328
